FAERS Safety Report 14565142 (Version 3)
Quarter: 2020Q2

REPORT INFORMATION
  Report Type: Spontaneous
  Country: CA (occurrence: CA)
  Receive Date: 20180223
  Receipt Date: 20200626
  Transmission Date: 20200713
  Serious: Yes (Life-Threatening, Hospitalization, Other)
  Sender: FDA-Public Use
  Company Number: CA-BRISTOL-MYERS SQUIBB COMPANY-BMS-2018-017583

PATIENT
  Age: 58 Year
  Sex: Female

DRUGS (1)
  1. OPDIVO [Suspect]
     Active Substance: NIVOLUMAB
     Indication: BRAIN NEOPLASM
     Dosage: UNK
     Route: 042

REACTIONS (3)
  - Muscular weakness [Unknown]
  - Malignant neoplasm progression [Unknown]
  - Intentional product use issue [Unknown]
